FAERS Safety Report 5834393-5 (Version None)
Quarter: 2008Q3

REPORT INFORMATION
  Report Type: 
  Country: None (occurrence: None)
  Receive Date: 20080722
  Receipt Date: 20080219
  Transmission Date: 20090109
  Serious: Yes (Other)
  Sender: FDA-Public Use
  Company Number: 2008BI004223

PATIENT
  Sex: Female
  Weight: 51.7101 kg

DRUGS (2)
  1. AVONEX [Suspect]
     Indication: MULTIPLE SCLEROSIS
     Dosage: 30 UG;QW;IM
     Route: 030
     Dates: start: 19961001, end: 20010101
  2. NEURONTIN [Concomitant]

REACTIONS (2)
  - ACCIDENTAL NEEDLE STICK [None]
  - CONVULSION [None]
